FAERS Safety Report 10045186 (Version 1)
Quarter: 2014Q1

REPORT INFORMATION
  Report Type: Spontaneous
  Country: US (occurrence: US)
  Receive Date: 20140328
  Receipt Date: 20140328
  Transmission Date: 20141002
  Serious: Yes (Hospitalization)
  Sender: FDA-Public Use
  Company Number: US-BAYER-2014-042688

PATIENT
  Age: 89 Year
  Sex: Female
  Weight: 64 kg

DRUGS (23)
  1. ALEVE CAPLET [Suspect]
     Dosage: 14 DF, IN 3 - 4 HOURS
     Route: 048
     Dates: start: 20140317, end: 20140318
  2. COUMADIN [Interacting]
  3. VOLTAREN [Concomitant]
  4. ARICEPT [Concomitant]
  5. XANAX [Concomitant]
  6. PROZAC [Concomitant]
  7. NEURONTIN [Concomitant]
  8. ALDACTAZIDE [Concomitant]
  9. HYDROXYCHLOROQUINE [Concomitant]
  10. CARDIZEM [Concomitant]
  11. LEVOTHYROXINE [Concomitant]
  12. IMDUR [Concomitant]
  13. NITROSTAT [Concomitant]
  14. KEFLEX [Concomitant]
  15. CRANBERRY [Concomitant]
  16. MACROBID [Concomitant]
  17. BENADRYL [Concomitant]
  18. ZOCOR [Concomitant]
  19. ZOFRAN [Concomitant]
  20. MIRALAX [Concomitant]
  21. PRILOSEC [Concomitant]
  22. VITAMIN B6 [Concomitant]
  23. VITAMIN B12 [Concomitant]

REACTIONS (7)
  - Abasia [Recovered/Resolved]
  - Haematochezia [Recovered/Resolved]
  - Disorientation [Not Recovered/Not Resolved]
  - Haemoptysis [Recovered/Resolved]
  - Renal failure acute [None]
  - Overdose [Recovered/Resolved]
  - Labelled drug-drug interaction medication error [Recovered/Resolved]
